FAERS Safety Report 10234086 (Version 1)
Quarter: 2014Q2

REPORT INFORMATION
  Report Type: Spontaneous
  Country: US (occurrence: US)
  Receive Date: 20140612
  Receipt Date: 20140612
  Transmission Date: 20141212
  Serious: Yes (Hospitalization)
  Sender: FDA-Public Use
  Company Number: US-TEVA-487033USA

PATIENT
  Age: 41 Year
  Sex: Female

DRUGS (1)
  1. COPAXONE 40MG [Suspect]

REACTIONS (1)
  - Myocardial infarction [Recovered/Resolved]
